FAERS Safety Report 10044529 (Version 2)
Quarter: 2014Q2

REPORT INFORMATION
  Report Type: Spontaneous
  Country: CH (occurrence: CH)
  Receive Date: 20140328
  Receipt Date: 20140515
  Transmission Date: 20141212
  Serious: Yes (Death, Hospitalization, Other)
  Sender: FDA-Public Use
  Company Number: CH-009507513-1403CHE012574

PATIENT
  Age: 66 Year
  Sex: Male

DRUGS (2)
  1. TEMODAL [Suspect]
     Indication: NEUROENDOCRINE TUMOUR
     Dosage: 340 MG, ONCE DAILY, FOR 5 CONSECUTIVE DAYS OF A 1-MONTH CYCLE
     Route: 048
     Dates: start: 20140226, end: 20140311
  2. XELODA [Suspect]
     Indication: NEUROENDOCRINE TUMOUR
     Dosage: 14 DAYS OF A 1-MONTH CYCLE
     Route: 048
     Dates: start: 20140226, end: 20140311

REACTIONS (3)
  - Neoplasm progression [Fatal]
  - General physical health deterioration [Fatal]
  - Off label use [Unknown]
